FAERS Safety Report 5573970-6 (Version None)
Quarter: 2007Q4

REPORT INFORMATION
  Report Type: 
  Country: None (occurrence: None)
  Receive Date: 20071220
  Receipt Date: 20071204
  Transmission Date: 20080405
  Serious: Yes (Death, Other)
  Sender: FDA-Public Use
  Company Number: 2007US003157

PATIENT
  Age: 18 Year
  Sex: Female

DRUGS (1)
  1. PROGRAF [Suspect]
     Indication: LIVER TRANSPLANT
     Dosage: ORAL
     Route: 048

REACTIONS (6)
  - COMPLICATIONS OF TRANSPLANTED LIVER [None]
  - DRUG EXPOSURE DURING PREGNANCY [None]
  - GANGRENE [None]
  - GRAFT THROMBOSIS [None]
  - HEPATIC FAILURE [None]
  - PREGNANCY [None]
